FAERS Safety Report 18199697 (Version 5)
Quarter: 2025Q2

REPORT INFORMATION
  Report Type: Spontaneous
  Country: SK (occurrence: SK)
  Receive Date: 20200826
  Receipt Date: 20250407
  Transmission Date: 20250716
  Serious: Yes (Hospitalization, Other)
  Sender: SANOFI AVENTIS
  Company Number: SK-EMA-DD-20190816-KHARE_I-095834

PATIENT
  Age: 53 Year
  Sex: Female

DRUGS (7)
  1. DOCETAXEL [Suspect]
     Active Substance: DOCETAXEL
     Indication: Breast cancer
  2. ADRIAMYCIN [Suspect]
     Active Substance: DOXORUBICIN HYDROCHLORIDE
     Indication: Breast cancer
  3. TRASTUZUMAB [Suspect]
     Active Substance: TRASTUZUMAB
     Indication: Breast cancer
  4. CYCLOPHOSPHAMIDE [Suspect]
     Active Substance: CYCLOPHOSPHAMIDE
     Indication: Breast cancer
  5. LETROZOLE [Suspect]
     Active Substance: LETROZOLE
     Indication: Breast cancer
  6. LEVOCARNITINE [Concomitant]
     Active Substance: LEVOCARNITINE
  7. DIETARY SUPPLEMENT\UBIDECARENONE [Concomitant]
     Active Substance: DIETARY SUPPLEMENT\UBIDECARENONE

REACTIONS (21)
  - Obesity [Unknown]
  - Orthopnoea [Recovering/Resolving]
  - Spinal pain [Unknown]
  - Ventricular hypokinesia [Recovering/Resolving]
  - Cough [Recovering/Resolving]
  - Dilated cardiomyopathy [Recovering/Resolving]
  - Dizziness [Recovered/Resolved]
  - Cardiac failure chronic [Recovered/Resolved]
  - Ejection fraction decreased [Recovered/Resolved]
  - Diastolic dysfunction [Not Recovered/Not Resolved]
  - Rales [Recovered/Resolved]
  - Bundle branch block left [Not Recovered/Not Resolved]
  - Cardiac failure acute [Recovered/Resolved]
  - Oedema peripheral [Recovered/Resolved]
  - Dyspnoea [Recovered/Resolved]
  - Fatigue [Recovered/Resolved]
  - Pulmonary congestion [Recovered/Resolved]
  - Tachypnoea [Recovered/Resolved]
  - Condition aggravated [Recovered/Resolved]
  - Pulmonary hypertension [Recovered/Resolved]
  - Heart sounds abnormal [Recovered/Resolved]

NARRATIVE: CASE EVENT DATE: 20160101
